FAERS Safety Report 24825217 (Version 1)
Quarter: 2025Q1

REPORT INFORMATION
  Report Type: Spontaneous
  Country: US (occurrence: None)
  Receive Date: 20250109
  Receipt Date: 20250109
  Transmission Date: 20250408
  Serious: Yes (Hospitalization, Disabling, Other)
  Sender: FDA-CTU
  Company Number: None

PATIENT
  Age: 3 Year
  Sex: Male
  Weight: 17.55 kg

DRUGS (3)
  1. ACYCLOVIR [Suspect]
     Active Substance: ACYCLOVIR
     Indication: Oral herpes
     Dosage: OTHER QUANTITY : 8 ML;?FREQUENCY : 4 TIMES A DAY;?
     Route: 048
     Dates: start: 20241223, end: 20241223
  2. Only kids multi [Concomitant]
  3. PROBIOTICS NOS [Concomitant]
     Active Substance: PROBIOTICS NOS

REACTIONS (6)
  - Cerebellar ataxia [None]
  - Stomatitis [None]
  - Adenoidal disorder [None]
  - Tonsillar disorder [None]
  - Lymphadenopathy [None]
  - Paranasal sinus mucosal hypertrophy [None]

NARRATIVE: CASE EVENT DATE: 20241224
